FAERS Safety Report 9781185 (Version 1)
Quarter: 2013Q4

REPORT INFORMATION
  Report Type: Spontaneous
  Country: US (occurrence: None)
  Receive Date: 20131223
  Receipt Date: 20131223
  Transmission Date: 20140711
  Serious: Yes (Other)
  Sender: FDA-Public Use
  Company Number: None

PATIENT
  Age: 41 Year
  Sex: Female
  Weight: 113.4 kg

DRUGS (6)
  1. LEXAPRO [Suspect]
     Indication: ANXIETY
     Dosage: TAKEN BY MOUTH
     Route: 048
     Dates: start: 20130703, end: 20131211
  2. LEXAPRO [Suspect]
     Indication: PANIC DISORDER
     Dosage: TAKEN BY MOUTH
     Route: 048
     Dates: start: 20130703, end: 20131211
  3. LEXAPRO [Suspect]
     Indication: AGORAPHOBIA
     Dosage: TAKEN BY MOUTH
     Route: 048
     Dates: start: 20130703, end: 20131211
  4. LEXAPRO [Suspect]
     Indication: DEPRESSION
     Dosage: TAKEN BY MOUTH
     Route: 048
     Dates: start: 20130703, end: 20131211
  5. LEXAPRO [Suspect]
     Indication: POST-TRAUMATIC STRESS DISORDER
     Dosage: TAKEN BY MOUTH
     Route: 048
     Dates: start: 20130703, end: 20131211
  6. LEXAPRO [Suspect]
     Indication: OBSESSIVE-COMPULSIVE DISORDER
     Dosage: TAKEN BY MOUTH
     Route: 048
     Dates: start: 20130703, end: 20131211

REACTIONS (8)
  - Drug withdrawal syndrome [None]
  - Weight increased [None]
  - Blood triglycerides increased [None]
  - Blood cholesterol increased [None]
  - Paraesthesia [None]
  - Extrasystoles [None]
  - Dizziness [None]
  - Balance disorder [None]
